FAERS Safety Report 17996251 (Version 1)
Quarter: 2020Q3

REPORT INFORMATION
  Report Type: Spontaneous
  Country: NL (occurrence: GB)
  Receive Date: 20200708
  Receipt Date: 20200708
  Transmission Date: 20201103
  Serious: Yes (Other)
  Sender: FDA-Public Use
  Company Number: GB-FRESENIUS KABI-FK202006804

PATIENT
  Sex: Female

DRUGS (3)
  1. CARBOPLATIN (MANUFACTURER UNKNOWN) [Suspect]
     Active Substance: CARBOPLATIN
     Indication: OVARIAN CANCER
     Dosage: UNK
     Route: 065
  2. LETROZOLE. [Suspect]
     Active Substance: LETROZOLE
     Indication: PRODUCT USED FOR UNKNOWN INDICATION
     Dosage: UNK
     Route: 065
  3. PACLITAXEL (MANUFACTURER UNKNOWN) [Suspect]
     Active Substance: PACLITAXEL
     Indication: OVARIAN CANCER
     Dosage: UNK
     Route: 065

REACTIONS (6)
  - Venous thrombosis [Unknown]
  - Pain [Unknown]
  - Ovarian cancer recurrent [Unknown]
  - Hydronephrosis [Unknown]
  - Pelvic organ injury [Unknown]
  - May-Thurner syndrome [Unknown]

NARRATIVE: CASE EVENT DATE: 2015
